FAERS Safety Report 5441481-4 (Version None)
Quarter: 2007Q3

REPORT INFORMATION
  Report Type: 
  Country: None (occurrence: None)
  Receive Date: 20070904
  Receipt Date: 20070829
  Transmission Date: 20080115
  Serious: Yes (Hospitalization)
  Sender: FDA-Public Use
  Company Number: PHBS2007SE14366

PATIENT
  Age: 78 Year
  Sex: Female

DRUGS (9)
  1. TEGRETOL [Suspect]
     Indication: EPILEPSY
  2. MOVICOL [Concomitant]
  3. ARICEPT [Concomitant]
  4. STESOLID [Concomitant]
  5. SOBRIL [Concomitant]
  6. TRIOBE [Concomitant]
  7. ZOPICLONE [Concomitant]
  8. TROMBYL [Concomitant]
  9. ACETAMINOPHEN [Concomitant]

REACTIONS (4)
  - ANOREXIA [None]
  - DYSARTHRIA [None]
  - FATIGUE [None]
  - GAIT DISTURBANCE [None]
